FAERS Safety Report 8128065-4 (Version None)
Quarter: 2012Q1

REPORT INFORMATION
  Report Type: 
  Country: None (occurrence: None)
  Receive Date: 20120210
  Receipt Date: 20120206
  Transmission Date: 20120608
  Serious: Yes (Other)
  Sender: FDA-Public Use
  Company Number: US-PFIZER INC-2011310861

PATIENT
  Sex: Female
  Weight: 59 kg

DRUGS (9)
  1. NEURONTIN [Suspect]
     Indication: ANXIETY
     Dosage: UNK
     Route: 048
  2. NEURONTIN [Suspect]
     Indication: MIGRAINE
  3. ZOLOFT [Concomitant]
     Indication: ANXIETY
  4. GABAPENTIN [Suspect]
     Indication: ANXIETY
     Dosage: UNK
     Route: 048
  5. GABAPENTIN [Suspect]
     Dosage: 1200 MG, 3X/DAY
  6. CLONIDINE [Concomitant]
     Indication: ANXIETY
     Dosage: 0.1 MG, 4X/DAY
     Route: 048
  7. ZOLOFT [Concomitant]
     Indication: DEPRESSION
     Dosage: 100 MG, 1X/DAY
  8. VALIUM [Concomitant]
     Indication: ANXIETY
     Dosage: 5 MG, 1-2 TABS 3X/DAY AS NEEDED
  9. NEURONTIN [Suspect]
     Indication: MOOD ALTERED
     Dosage: 600 MG, 16 PILLS EVERYDAY
     Route: 048

REACTIONS (2)
  - DRUG DEPENDENCE [None]
  - DRUG ABUSE [None]
